FAERS Safety Report 7494818-9 (Version None)
Quarter: 2011Q2

REPORT INFORMATION
  Report Type: 
  Country: None (occurrence: None)
  Receive Date: 20110520
  Receipt Date: 20110512
  Transmission Date: 20111010
  Serious: Yes (Hospitalization)
  Sender: FDA-Public Use
  Company Number: A0928073A

PATIENT
  Age: 55 Year
  Sex: Female
  Weight: 98.7 kg

DRUGS (9)
  1. MELPHALAN HYDROCHLORIDE [Suspect]
     Indication: AMYLOIDOSIS
     Route: 042
     Dates: start: 20110329
  2. LEVOTHYROXINE SODIUM [Concomitant]
  3. BUMETANIDE [Concomitant]
  4. SIMVASTATIN [Concomitant]
  5. ASPIRIN [Concomitant]
  6. MICARDIS [Concomitant]
  7. ACETAMINOPHEN [Concomitant]
  8. ZANTAC [Concomitant]
  9. KLOR-CON [Concomitant]

REACTIONS (2)
  - RENAL FAILURE [None]
  - ARRHYTHMIA SUPRAVENTRICULAR [None]
